FAERS Safety Report 7151129-9 (Version None)
Quarter: 2010Q4

REPORT INFORMATION
  Report Type: 
  Country: None (occurrence: None)
  Receive Date: 20101210
  Receipt Date: 20101201
  Transmission Date: 20110411
  Serious: Yes (Other)
  Sender: FDA-Public Use
  Company Number: US-PFIZER INC-2009298625

PATIENT
  Sex: Female
  Weight: 68.027 kg

DRUGS (15)
  1. GLUCOTROL XL [Interacting]
     Indication: DIABETES MELLITUS
     Dosage: UNK
     Route: 048
     Dates: start: 20060101
  2. GLUCOTROL XL [Interacting]
     Dosage: 5 MG, 1X/DAY
  3. GLUCOTROL XL [Interacting]
     Dosage: 10 MG, DAILY
     Route: 048
  4. LIPITOR [Interacting]
     Indication: BLOOD CHOLESTEROL INCREASED
     Dosage: 20 MG, DAILY
     Route: 048
  5. LIPITOR [Interacting]
     Indication: HYPERTENSION
  6. NORVASC [Interacting]
     Indication: HYPERTENSION
     Dosage: 2.5 MG, DAILY
     Route: 048
  7. DETROL LA [Suspect]
     Indication: FUNGAL INFECTION
     Dosage: 2 MG, 1X/DAY
     Route: 048
     Dates: start: 20080101
  8. DETROL LA [Suspect]
     Indication: URINARY TRACT INFECTION
  9. DETROL LA [Suspect]
     Indication: PAIN
  10. DETROL LA [Suspect]
     Indication: BLADDER SPASM
  11. DETROL LA [Suspect]
     Indication: POLLAKIURIA
  12. LISINOPRIL AND HYDROCHLOROTHIAZIDE [Concomitant]
     Indication: HYPERTENSION
     Dosage: 20MG/25 MG ONCE DAILY
  13. ASPIRIN [Concomitant]
     Dosage: 81 MG, 1X/DAY
  14. METFORMIN [Concomitant]
     Indication: DIABETES MELLITUS
     Dosage: 500 MG, 2X/DAY
  15. ATENOLOL [Concomitant]
     Indication: HYPERTENSION
     Dosage: 25 MG, UNK

REACTIONS (12)
  - AMBLYOPIA [None]
  - BLADDER SPASM [None]
  - BLINDNESS [None]
  - BLOOD GLUCOSE DECREASED [None]
  - CATARACT [None]
  - CATARACT OPERATION [None]
  - DEAFNESS [None]
  - DRUG INTERACTION [None]
  - FUNGAL INFECTION [None]
  - POLLAKIURIA [None]
  - POST PROCEDURAL COMPLICATION [None]
  - RETINAL OEDEMA [None]
